FAERS Safety Report 11971113 (Version 1)
Quarter: 2016Q1

REPORT INFORMATION
  Report Type: Spontaneous
  Country: None (occurrence: None)
  Receive Date: 20160127
  Receipt Date: 20160127
  Transmission Date: 20160526
  Serious: No
  Sender: FDA-Public Use
  Company Number: None

PATIENT
  Sex: Female

DRUGS (1)
  1. LIDOCAINE PATCH 5% MYLAN [Suspect]
     Active Substance: LIDOCAINE
     Dosage: 1 PATCH 12HR ON, 12 HR OFF TOPICAL
     Route: 061

REACTIONS (2)
  - Product adhesion issue [None]
  - Application site erythema [None]
